FAERS Safety Report 6914915-3 (Version None)
Quarter: 2010Q3

REPORT INFORMATION
  Report Type: 
  Country: None (occurrence: None)
  Receive Date: 20100809
  Receipt Date: 20100728
  Transmission Date: 20110219
  Serious: Yes (Hospitalization)
  Sender: FDA-Public Use
  Company Number: PHHY2010IT39912

PATIENT
  Sex: Female

DRUGS (4)
  1. EXELON [Suspect]
     Indication: DEMENTIA ALZHEIMER'S TYPE
     Dosage: 4.6 MG, QD
     Route: 062
     Dates: start: 20100529, end: 20100606
  2. AMOXICILLIN AND CLAVULANATE POTASSIUM [Suspect]
     Indication: BRONCHITIS
     Dosage: 2 DF, 875 MG + 125 MG
     Route: 048
     Dates: start: 20100601, end: 20100606
  3. RISPERDAL [Concomitant]
     Indication: SCHIZOPHRENIA
     Dosage: 1 MG, 2 POSOLOGIC UNITS
     Route: 048
  4. EUTIROX [Concomitant]
     Indication: HYPOTHYROIDISM
     Dosage: 50 UG, 1 POSOLOGIC UNIT
     Route: 048

REACTIONS (7)
  - BRONCHITIS [None]
  - DIARRHOEA [None]
  - DYSPHAGIA [None]
  - FALL [None]
  - GAIT DISTURBANCE [None]
  - PRESYNCOPE [None]
  - RASH [None]
